FAERS Safety Report 8612434-X (Version None)
Quarter: 2012Q3

REPORT INFORMATION
  Report Type: 
  Country: None (occurrence: None)
  Receive Date: 20120809
  Receipt Date: 20120725
  Transmission Date: 20120928
  Serious: Yes (Death, Other)
  Sender: FDA-Public Use
  Company Number: 2012MA009123

PATIENT
  Age: 51 Year
  Sex: Female

DRUGS (11)
  1. PROMETHAZINE HCL [Suspect]
     Indication: COMPLETED SUICIDE
  2. LISINOPRIL [Concomitant]
  3. KADIAN [Suspect]
     Indication: COMPLETED SUICIDE
  4. FLUOXETINE [Suspect]
     Indication: COMPLETED SUICIDE
  5. RIFAMPIN [Concomitant]
  6. DICLOXACILLIN [Concomitant]
  7. HYDROMORPHONE HCL [Suspect]
     Indication: COMPLETED SUICIDE
  8. CIPROFLOXACIN [Concomitant]
  9. MONTELUKAST [Concomitant]
  10. ALPRAZOLAM [Suspect]
     Indication: COMPLETED SUICIDE
  11. CLINDAMYCIN [Concomitant]

REACTIONS (15)
  - COMPLETED SUICIDE [None]
  - PALLOR [None]
  - PUPIL FIXED [None]
  - VENTRICULAR TACHYCARDIA [None]
  - PULMONARY OEDEMA [None]
  - HEPATITIS [None]
  - NEPHROSCLEROSIS [None]
  - UNRESPONSIVE TO STIMULI [None]
  - TOXICITY TO VARIOUS AGENTS [None]
  - CARDIOMEGALY [None]
  - COLD SWEAT [None]
  - PULSE ABSENT [None]
  - CARDITIS [None]
  - BLOOD PRESSURE DECREASED [None]
  - BRAIN OEDEMA [None]
